FAERS Safety Report 7921321-1 (Version None)
Quarter: 2011Q4

REPORT INFORMATION
  Report Type: 
  Country: None (occurrence: None)
  Receive Date: 20111117
  Receipt Date: 20111102
  Transmission Date: 20120403
  Serious: No
  Sender: FDA-Public Use
  Company Number: US-B.I. PHARMACEUTICALS,INC./RIDGEFIELD-2011-BP-24680BP

PATIENT
  Age: 81 Year
  Sex: Male

DRUGS (2)
  1. NIASPAN [Concomitant]
     Indication: BLOOD CHOLESTEROL INCREASED
  2. PRADAXA [Suspect]
     Indication: ATRIAL FIBRILLATION
     Dosage: 300 MG
     Route: 048
     Dates: start: 20110701

REACTIONS (4)
  - ARTHRALGIA [None]
  - CONTUSION [None]
  - MYALGIA [None]
  - NEUROPATHY PERIPHERAL [None]
